FAERS Safety Report 6437367 (Version 3)
Quarter: 2013Q2

REPORT INFORMATION
  Report Type: Report from Study
  Country: IE (occurrence: IE)
  Receive Date: 20071008
  Receipt Date: 20130418
  Transmission Date: 20140414
  Serious: Yes (Hospitalization, Disabling)
  Sender: FDA-Public Use
  Company Number: PHHO2007IE15885

PATIENT
  Sex: 0

DRUGS (5)
  1. CGS 20267 [Suspect]
     Indication: BREAST CANCER
     Dosage: 2.5 MG, QD
     Route: 048
     Dates: start: 20070808, end: 20070924
  2. CGS 20267 [Suspect]
     Dosage: 2.5 MG, QD
     Route: 048
     Dates: start: 20071101
  3. AMLODIPINE [Concomitant]
  4. DIOVAN [Concomitant]
  5. CARDURA [Concomitant]

REACTIONS (6)
  - Arthropod sting [Not Recovered/Not Resolved]
  - Dysphagia [Not Recovered/Not Resolved]
  - Eye swelling [Not Recovered/Not Resolved]
  - Rash maculo-papular [Not Recovered/Not Resolved]
  - Rash erythematous [Not Recovered/Not Resolved]
  - Rash [Recovered/Resolved]
